FAERS Safety Report 9302644 (Version 1)
Quarter: 2013Q2

REPORT INFORMATION
  Report Type: Spontaneous
  Country: US (occurrence: US)
  Receive Date: 20130522
  Receipt Date: 20130522
  Transmission Date: 20140414
  Serious: Yes (Other)
  Sender: FDA-Public Use
  Company Number: US-SANOFI-AVENTIS-2013SA050199

PATIENT
  Sex: 0

DRUGS (2)
  1. PLAVIX [Suspect]
  2. ASPIRIN [Concomitant]

REACTIONS (1)
  - Atrial fibrillation [Unknown]
